FAERS Safety Report 8587060-1 (Version None)
Quarter: 2012Q3

REPORT INFORMATION
  Report Type: 
  Country: None (occurrence: None)
  Receive Date: 20120810
  Receipt Date: 20120706
  Transmission Date: 20120928
  Serious: No
  Sender: FDA-Public Use
  Company Number: GB-ASTRAZENECA-2012SE46411

PATIENT
  Age: 80 Year
  Sex: Female

DRUGS (3)
  1. PRILOSEC [Suspect]
     Route: 048
  2. TYLENOL [Concomitant]
     Indication: SINUS HEADACHE
     Route: 048
  3. NEURONTIN [Suspect]
     Indication: TRIGEMINAL NEURALGIA
     Route: 048
     Dates: start: 20120201

REACTIONS (9)
  - MENTAL IMPAIRMENT [None]
  - HYPOREFLEXIA [None]
  - FATIGUE [None]
  - BALANCE DISORDER [None]
  - MANIA [None]
  - DIZZINESS [None]
  - LOGORRHOEA [None]
  - SPEECH DISORDER [None]
  - SINUS HEADACHE [None]
